FAERS Safety Report 13127329 (Version 6)
Quarter: 2021Q1

REPORT INFORMATION
  Report Type: Report from Study
  Country: KR (occurrence: KR)
  Receive Date: 20170118
  Receipt Date: 20210203
  Transmission Date: 20210419
  Serious: Yes (Hospitalization)
  Sender: FDA-Public Use
  Company Number: KP-ASTRAZENECA-2017SE00901

PATIENT
  Age: 16165 Day
  Sex: Female

DRUGS (85)
  1. AZD6738 [Suspect]
     Active Substance: CERALASERTIB
     Indication: NEOPLASM
     Route: 048
     Dates: start: 20170128, end: 20170201
  2. AZD6738 [Suspect]
     Active Substance: CERALASERTIB
     Indication: NEOPLASM
     Route: 048
     Dates: start: 20180222, end: 20180228
  3. AZD6738 [Suspect]
     Active Substance: CERALASERTIB
     Indication: NEOPLASM
     Route: 048
     Dates: start: 20180517, end: 20180523
  4. AZD6738 [Suspect]
     Active Substance: CERALASERTIB
     Indication: NEOPLASM
     Route: 048
     Dates: start: 20180906, end: 20180912
  5. AZD6738 [Suspect]
     Active Substance: CERALASERTIB
     Indication: NEOPLASM
     Route: 048
     Dates: start: 20190124, end: 20190130
  6. OLAPARIB. [Suspect]
     Active Substance: OLAPARIB
     Indication: NEOPLASM
     Route: 048
     Dates: start: 20161124, end: 20161221
  7. OLAPARIB. [Suspect]
     Active Substance: OLAPARIB
     Indication: NEOPLASM
     Route: 048
     Dates: start: 20170407, end: 20170504
  8. OLAPARIB. [Suspect]
     Active Substance: OLAPARIB
     Indication: NEOPLASM
     Route: 048
     Dates: start: 20170505, end: 20170517
  9. OLAPARIB. [Suspect]
     Active Substance: OLAPARIB
     Indication: NEOPLASM
     Route: 048
     Dates: start: 20171121, end: 20171129
  10. OLAPARIB. [Suspect]
     Active Substance: OLAPARIB
     Indication: NEOPLASM
     Route: 048
     Dates: start: 20180322, end: 20180418
  11. OLAPARIB. [Suspect]
     Active Substance: OLAPARIB
     Indication: NEOPLASM
     Route: 048
     Dates: start: 20181004, end: 20181031
  12. OLAPARIB. [Suspect]
     Active Substance: OLAPARIB
     Indication: NEOPLASM
     Route: 048
     Dates: start: 20181101, end: 20190626
  13. CHLORHEXIDINE GLUCONATE. [Concomitant]
     Active Substance: CHLORHEXIDINE GLUCONATE
     Indication: STOMATITIS
     Dosage: 100.0ML AS REQUIRED
     Route: 002
     Dates: start: 20170105, end: 20170316
  14. AZD6738 [Suspect]
     Active Substance: CERALASERTIB
     Indication: NEOPLASM
     Route: 048
     Dates: start: 20170310, end: 20170314
  15. AZD6738 [Suspect]
     Active Substance: CERALASERTIB
     Indication: NEOPLASM
     Route: 048
     Dates: start: 20170407, end: 20170413
  16. OLAPARIB. [Suspect]
     Active Substance: OLAPARIB
     Indication: NEOPLASM
     Route: 048
     Dates: start: 20161222, end: 20170102
  17. OLAPARIB. [Suspect]
     Active Substance: OLAPARIB
     Indication: NEOPLASM
     Route: 048
     Dates: start: 20170127, end: 20170127
  18. OLAPARIB. [Suspect]
     Active Substance: OLAPARIB
     Indication: NEOPLASM
     Route: 048
     Dates: start: 20170602, end: 20170629
  19. OLAPARIB. [Suspect]
     Active Substance: OLAPARIB
     Indication: NEOPLASM
     Route: 048
     Dates: start: 20170630, end: 20170711
  20. OLAPARIB. [Suspect]
     Active Substance: OLAPARIB
     Indication: NEOPLASM
     Route: 048
     Dates: start: 20170817, end: 20170824
  21. OLAPARIB. [Suspect]
     Active Substance: OLAPARIB
     Indication: NEOPLASM
     Route: 048
     Dates: start: 20170922, end: 20171018
  22. OLAPARIB. [Suspect]
     Active Substance: OLAPARIB
     Indication: NEOPLASM
     Route: 048
     Dates: start: 20180614, end: 20180711
  23. OLAPARIB. [Suspect]
     Active Substance: OLAPARIB
     Indication: NEOPLASM
     Route: 048
     Dates: start: 20190729, end: 20190821
  24. PACETA [Concomitant]
     Indication: ABDOMINAL PAIN
     Route: 042
     Dates: start: 20170103, end: 20170108
  25. AZD6738 [Suspect]
     Active Substance: CERALASERTIB
     Indication: NEOPLASM
     Route: 048
     Dates: start: 20161124, end: 20161130
  26. AZD6738 [Suspect]
     Active Substance: CERALASERTIB
     Indication: NEOPLASM
     Route: 048
     Dates: start: 20170630, end: 20170706
  27. AZD6738 [Suspect]
     Active Substance: CERALASERTIB
     Indication: NEOPLASM
     Route: 048
     Dates: start: 20170825, end: 20170831
  28. AZD6738 [Suspect]
     Active Substance: CERALASERTIB
     Indication: NEOPLASM
     Route: 048
     Dates: start: 20170922, end: 20170928
  29. AZD6738 [Suspect]
     Active Substance: CERALASERTIB
     Indication: NEOPLASM
     Route: 048
     Dates: start: 20180419, end: 20180425
  30. AZD6738 [Suspect]
     Active Substance: CERALASERTIB
     Indication: NEOPLASM
     Route: 048
     Dates: start: 20190418, end: 20190424
  31. AZD6738 [Suspect]
     Active Substance: CERALASERTIB
     Indication: NEOPLASM
     Route: 048
     Dates: start: 20190613, end: 20190619
  32. AZD6738 [Suspect]
     Active Substance: CERALASERTIB
     Indication: NEOPLASM
     Dosage: 240.0MG ONCE/SINGLE ADMINISTRATION
     Route: 048
     Dates: start: 20161117, end: 20161117
  33. OLAPARIB. [Suspect]
     Active Substance: OLAPARIB
     Indication: NEOPLASM
     Route: 048
     Dates: start: 20170203, end: 20170215
  34. OLAPARIB. [Suspect]
     Active Substance: OLAPARIB
     Indication: NEOPLASM
     Route: 048
     Dates: start: 20170728, end: 20170809
  35. PANTOPRAZOLE [Concomitant]
     Active Substance: PANTOPRAZOLE
     Indication: GASTROENTERITIS
     Route: 048
     Dates: start: 20161227, end: 20170103
  36. ANYCOUGH [Concomitant]
     Active Substance: THEOBROMINE
     Indication: UPPER RESPIRATORY TRACT INFECTION
     Route: 048
     Dates: start: 20161227, end: 20170103
  37. AZD6738 [Suspect]
     Active Substance: CERALASERTIB
     Indication: NEOPLASM
     Route: 048
     Dates: start: 20161222, end: 20161228
  38. AZD6738 [Suspect]
     Active Substance: CERALASERTIB
     Indication: NEOPLASM
     Route: 048
     Dates: start: 20170728, end: 20170803
  39. AZD6738 [Suspect]
     Active Substance: CERALASERTIB
     Indication: NEOPLASM
     Route: 048
     Dates: start: 20171130, end: 20171206
  40. AZD6738 [Suspect]
     Active Substance: CERALASERTIB
     Indication: NEOPLASM
     Route: 048
     Dates: start: 20180614, end: 20180620
  41. AZD6738 [Suspect]
     Active Substance: CERALASERTIB
     Indication: NEOPLASM
     Route: 048
     Dates: start: 20181129, end: 20181205
  42. AZD6738 [Suspect]
     Active Substance: CERALASERTIB
     Indication: NEOPLASM
     Route: 048
     Dates: start: 20190711, end: 20190717
  43. AZD6738 [Suspect]
     Active Substance: CERALASERTIB
     Indication: NEOPLASM
     Route: 048
     Dates: start: 20190808, end: 20190814
  44. OLAPARIB. [Suspect]
     Active Substance: OLAPARIB
     Indication: NEOPLASM
     Route: 048
     Dates: start: 20170714, end: 20170714
  45. OLAPARIB. [Suspect]
     Active Substance: OLAPARIB
     Indication: NEOPLASM
     Route: 048
     Dates: start: 20170715, end: 20170727
  46. OLAPARIB. [Suspect]
     Active Substance: OLAPARIB
     Indication: NEOPLASM
     Route: 048
     Dates: start: 20170825, end: 20170921
  47. OLAPARIB. [Suspect]
     Active Substance: OLAPARIB
     Indication: NEOPLASM
     Route: 048
     Dates: start: 20171102, end: 20171113
  48. OLAPARIB. [Suspect]
     Active Substance: OLAPARIB
     Indication: NEOPLASM
     Route: 048
     Dates: start: 20171130, end: 20171227
  49. OLAPARIB. [Suspect]
     Active Substance: OLAPARIB
     Indication: NEOPLASM
     Route: 048
     Dates: start: 20180125, end: 20180221
  50. OLAPARIB. [Suspect]
     Active Substance: OLAPARIB
     Indication: NEOPLASM
     Route: 048
     Dates: start: 20180419, end: 20180516
  51. OLAPARIB. [Suspect]
     Active Substance: OLAPARIB
     Indication: NEOPLASM
     Route: 048
     Dates: start: 20180712, end: 20180808
  52. OLAPARIB. [Suspect]
     Active Substance: OLAPARIB
     Indication: NEOPLASM
     Route: 048
     Dates: start: 20190702, end: 20190724
  53. POTASSIUM CHLORIDE. [Concomitant]
     Active Substance: POTASSIUM CHLORIDE
     Indication: HYPOKALAEMIA
     Dosage: 40.0MEQ AS REQUIRED
     Route: 042
     Dates: start: 20170105, end: 20170311
  54. KH2PO4 [Concomitant]
     Indication: HYPOKALAEMIA
     Route: 042
     Dates: start: 20170105, end: 20170105
  55. AZD6738 [Suspect]
     Active Substance: CERALASERTIB
     Indication: NEOPLASM
     Route: 048
     Dates: start: 20180712, end: 20180718
  56. AZD6738 [Suspect]
     Active Substance: CERALASERTIB
     Indication: NEOPLASM
     Route: 048
     Dates: start: 20180808, end: 20180815
  57. OLAPARIB. [Suspect]
     Active Substance: OLAPARIB
     Indication: NEOPLASM
     Route: 048
     Dates: start: 20170120, end: 20170124
  58. OLAPARIB. [Suspect]
     Active Substance: OLAPARIB
     Indication: NEOPLASM
     Route: 048
     Dates: start: 20170125, end: 20170125
  59. OLAPARIB. [Suspect]
     Active Substance: OLAPARIB
     Indication: NEOPLASM
     Route: 048
     Dates: start: 20170303, end: 20170303
  60. OLAPARIB. [Suspect]
     Active Substance: OLAPARIB
     Indication: NEOPLASM
     Route: 048
     Dates: start: 20170304, end: 20170309
  61. OLAPARIB. [Suspect]
     Active Substance: OLAPARIB
     Indication: NEOPLASM
     Route: 048
     Dates: start: 20171228, end: 20180124
  62. AZD6738 [Suspect]
     Active Substance: CERALASERTIB
     Indication: NEOPLASM
     Route: 048
     Dates: start: 20170602, end: 20170608
  63. AZD6738 [Suspect]
     Active Substance: CERALASERTIB
     Indication: NEOPLASM
     Route: 048
     Dates: start: 20180322, end: 20180328
  64. AZD6738 [Suspect]
     Active Substance: CERALASERTIB
     Indication: NEOPLASM
     Route: 048
     Dates: start: 20181101, end: 20181107
  65. AZD6738 [Suspect]
     Active Substance: CERALASERTIB
     Indication: NEOPLASM
     Route: 048
     Dates: start: 20190221, end: 20190228
  66. OLAPARIB. [Suspect]
     Active Substance: OLAPARIB
     Indication: NEOPLASM
     Route: 048
     Dates: start: 20170310, end: 20170406
  67. OLAPARIB. [Suspect]
     Active Substance: OLAPARIB
     Indication: NEOPLASM
     Route: 048
     Dates: start: 20180517, end: 20180613
  68. OLAPARIB. [Suspect]
     Active Substance: OLAPARIB
     Indication: NEOPLASM
     Route: 048
     Dates: start: 20180809, end: 20180905
  69. OLAPARIB. [Suspect]
     Active Substance: OLAPARIB
     Indication: NEOPLASM
     Route: 048
     Dates: start: 20180906, end: 20181003
  70. PHAZYME COMPLEX [Concomitant]
     Indication: ABDOMINAL PAIN
     Dosage: 1.0DF AS REQUIRED
     Route: 048
     Dates: start: 20161124
  71. AZD6738 [Suspect]
     Active Substance: CERALASERTIB
     Indication: NEOPLASM
     Route: 048
     Dates: start: 20170505, end: 20170511
  72. AZD6738 [Suspect]
     Active Substance: CERALASERTIB
     Indication: NEOPLASM
     Route: 048
     Dates: start: 20181227, end: 20190102
  73. OLAPARIB. [Suspect]
     Active Substance: OLAPARIB
     Indication: NEOPLASM
     Route: 048
     Dates: start: 20170524, end: 20170601
  74. OLAPARIB. [Suspect]
     Active Substance: OLAPARIB
     Indication: NEOPLASM
     Route: 048
     Dates: start: 20171026, end: 20171101
  75. AZD6738 [Suspect]
     Active Substance: CERALASERTIB
     Indication: NEOPLASM
     Route: 048
     Dates: start: 20171102, end: 20171108
  76. AZD6738 [Suspect]
     Active Substance: CERALASERTIB
     Indication: NEOPLASM
     Route: 048
     Dates: start: 20171228, end: 20180103
  77. AZD6738 [Suspect]
     Active Substance: CERALASERTIB
     Indication: NEOPLASM
     Route: 048
     Dates: start: 20180125, end: 20180131
  78. AZD6738 [Suspect]
     Active Substance: CERALASERTIB
     Indication: NEOPLASM
     Route: 048
     Dates: start: 20181004, end: 20181010
  79. AZD6738 [Suspect]
     Active Substance: CERALASERTIB
     Indication: NEOPLASM
     Route: 048
     Dates: start: 20190321, end: 20190327
  80. AZD6738 [Suspect]
     Active Substance: CERALASERTIB
     Indication: NEOPLASM
     Route: 048
     Dates: start: 20190516, end: 20190522
  81. OLAPARIB. [Suspect]
     Active Substance: OLAPARIB
     Indication: NEOPLASM
     Route: 048
     Dates: start: 20170126, end: 20170126
  82. OLAPARIB. [Suspect]
     Active Substance: OLAPARIB
     Indication: NEOPLASM
     Route: 048
     Dates: start: 20170128, end: 20170201
  83. OLAPARIB. [Suspect]
     Active Substance: OLAPARIB
     Indication: NEOPLASM
     Route: 048
     Dates: start: 20180222, end: 20180321
  84. GRASIN [Concomitant]
     Indication: FEBRILE NEUTROPENIA
     Dosage: 600.0UG AS REQUIRED
     Route: 058
     Dates: start: 20170104, end: 20170114
  85. NYSTATIN GARGLE [Concomitant]
     Indication: STOMATITIS
     Dosage: 100.0ML AS REQUIRED
     Route: 002
     Dates: start: 20170105, end: 20170316

REACTIONS (2)
  - Pneumonia [Recovered/Resolved]
  - Febrile neutropenia [Recovered/Resolved]

NARRATIVE: CASE EVENT DATE: 20170101
